FAERS Safety Report 22394191 (Version 1)
Quarter: 2023Q2

REPORT INFORMATION
  Report Type: Report from Study
  Country: US (occurrence: None)
  Receive Date: 20230601
  Receipt Date: 20230601
  Transmission Date: 20230721
  Serious: Yes (Other)
  Sender: FDA-Public Use
  Company Number: US-Merck Healthcare KGaA-9405294

PATIENT
  Sex: Female

DRUGS (2)
  1. REBIF [Suspect]
     Active Substance: INTERFERON BETA-1A
     Indication: Multiple sclerosis
     Route: 058
     Dates: start: 20170120, end: 20221226
  2. CORTISONE [Concomitant]
     Active Substance: CORTISONE
     Indication: Plantar fasciitis

REACTIONS (4)
  - Tendonitis [Unknown]
  - Weight increased [Unknown]
  - Implant site reaction [Unknown]
  - Gait disturbance [Unknown]
